FAERS Safety Report 7772120-5 (Version None)
Quarter: 2011Q3

REPORT INFORMATION
  Report Type: 
  Country: None (occurrence: None)
  Receive Date: 20110922
  Receipt Date: 20110121
  Transmission Date: 20111222
  Serious: No
  Sender: FDA-Public Use
  Company Number: US-ASTRAZENECA-2011SE04039

PATIENT
  Age: 37 Year
  Sex: Male
  Weight: 90.7 kg

DRUGS (2)
  1. SEROQUEL XR [Suspect]
     Indication: PERSONALITY CHANGE
     Route: 048
  2. SEROQUEL XR [Suspect]
     Indication: SEDATION
     Route: 048

REACTIONS (3)
  - PERSONALITY CHANGE [None]
  - DRUG DOSE OMISSION [None]
  - ANGER [None]
